FAERS Safety Report 10404617 (Version 1)
Quarter: 2014Q2

REPORT INFORMATION
  Report Type: Spontaneous
  Country: GB (occurrence: None)
  Receive Date: 20140604
  Receipt Date: 20140604
  Transmission Date: 20141212
  Serious: Yes (Other)
  Sender: FDA-Public Use
  Company Number: 2014GMK008459

PATIENT
  Age: 3 Year
  Sex: Female
  Weight: 12.2 kg

DRUGS (4)
  1. MONTELUKAST [Suspect]
     Indication: PRODUCT USED FOR UNKNOWN INDICATION
     Dates: start: 20140120
  2. CLENIL MODULITE (BECLOMETASONE DIPROPIONATE) [Concomitant]
  3. HYDROCORTISONE [Concomitant]
  4. SALBUTAMOL (SALBUTAMOL) [Concomitant]

REACTIONS (2)
  - Pyrexia [None]
  - Abnormal dreams [None]
